FAERS Safety Report 7682280-2 (Version None)
Quarter: 2011Q3

REPORT INFORMATION
  Report Type: 
  Country: None (occurrence: None)
  Receive Date: 20110805
  Receipt Date: 20110801
  Transmission Date: 20111222
  Serious: Yes (Disabling)
  Sender: FDA-Public Use
  Company Number: 2011SP029906

PATIENT
  Age: 64 Year
  Sex: Male
  Weight: 68.3 kg

DRUGS (4)
  1. VIRAFERONPEG [Suspect]
     Indication: HEPATITIS C
     Dosage: 90 MCG;QW;SC
     Route: 058
     Dates: start: 20110329
  2. REBETOL [Suspect]
     Indication: HEPATITIS C
     Dosage: 600 MG;QD;PO
     Route: 048
     Dates: start: 20110329
  3. BOCEPREVIR (SCH-503034) [Suspect]
     Indication: HEPATITIS C
     Dosage: 800 MG;TID;PO
     Route: 048
     Dates: start: 20110426
  4. NEORECORMON [Concomitant]

REACTIONS (3)
  - ANAEMIA [None]
  - FALL [None]
  - FOOT FRACTURE [None]
